FAERS Safety Report 10069742 (Version 2)
Quarter: 2014Q2

REPORT INFORMATION
  Report Type: Spontaneous
  Country: IT (occurrence: IT)
  Receive Date: 20140410
  Receipt Date: 20140416
  Transmission Date: 20141212
  Serious: Yes (Other)
  Sender: FDA-Public Use
  Company Number: IT-TEVA-473893ISR

PATIENT
  Age: 69 Year
  Sex: Female
  Weight: 64 kg

DRUGS (9)
  1. CLOPIDOGREL [Suspect]
     Indication: PRODUCT USED FOR UNKNOWN INDICATION
     Dosage: 75 MILLIGRAM DAILY;
     Route: 048
     Dates: start: 20120915, end: 20120928
  2. CORLENTOR - 5 MG COMPRESSA RIVESTITA CON FILM [Concomitant]
     Indication: PRODUCT USED FOR UNKNOWN INDICATION
  3. CONCOR - 10 MG COMPRESSE [Concomitant]
     Indication: PRODUCT USED FOR UNKNOWN INDICATION
  4. TRIATEC HCT - 5MG + 25 MG COMPRESSE [Concomitant]
     Indication: PRODUCT USED FOR UNKNOWN INDICATION
     Dosage: 1 DF: RAMIPRIL 5MG + HYDROCHLOROTHIAZIDE 25 MG
  5. TRINIPLAS - 5 MG/DIE CEROTTO TRANSDERMICO [Concomitant]
     Indication: PRODUCT USED FOR UNKNOWN INDICATION
  6. INEGY - 10MG/10MG COMPRESSE [Concomitant]
     Indication: PRODUCT USED FOR UNKNOWN INDICATION
  7. NOVONORM - 1,0 MG COMPRESSE [Concomitant]
     Indication: PRODUCT USED FOR UNKNOWN INDICATION
  8. RANITIDINA - ABC 20 COMPRESSE RIVESTITE CON FILM [Concomitant]
     Indication: PRODUCT USED FOR UNKNOWN INDICATION
  9. DISERINAL - 1 MCG CAPSULE MOLLI [Concomitant]
     Indication: PRODUCT USED FOR UNKNOWN INDICATION
     Dosage: SOFT CAPSULE

REACTIONS (6)
  - Quadriparesis [Recovered/Resolved]
  - Headache [Recovered/Resolved]
  - Hypersensitivity [Recovered/Resolved]
  - Hypertonia [Recovered/Resolved]
  - Reaction to drug excipients [Recovered/Resolved]
  - Vomiting [Recovered/Resolved]
